FAERS Safety Report 4362229-0 (Version None)
Quarter: 2004Q2

REPORT INFORMATION
  Report Type: 
  Country: None (occurrence: None)
  Receive Date: 20040517
  Receipt Date: 20040430
  Transmission Date: 20050107
  Serious: Yes (Death)
  Sender: FDA-Public Use
  Company Number: BIVUS040034

PATIENT
  Age: 78 Year
  Sex: Male

DRUGS (7)
  1. ANGIOMAX [Suspect]
     Indication: ANTICOAGULANT THERAPY
     Dosage: BOLUS, IV BOLUS
     Route: 040
     Dates: start: 20040416, end: 20040414
  2. INTEGRILIN [Suspect]
     Indication: CORONARY ANGIOPLASTY
     Dosage: BOLUS, IV BOLUS
     Route: 040
     Dates: start: 20040416, end: 20040416
  3. PLAVIX [Suspect]
     Indication: CORONARY ANGIOPLASTY
     Dosage: 300 MG, ONCE, ORAL; SEE IMAGE
     Route: 048
     Dates: start: 20040415, end: 20040415
  4. ASPIRIN [Suspect]
     Indication: CORONARY ARTERY DISEASE
     Dosage: 81 MG,QD ,ORAL
     Route: 048
  5. ZOCOR [Concomitant]
  6. TOPROL (METOPROLOL SUCCINATE) [Concomitant]
  7. LISINOPRIL [Concomitant]

REACTIONS (3)
  - AGITATION [None]
  - CARDIAC PROCEDURE COMPLICATION [None]
  - HAEMORRHAGE INTRACRANIAL [None]
